FAERS Safety Report 23088567 (Version 1)
Quarter: 2023Q4

REPORT INFORMATION
  Report Type: Spontaneous
  Country: US (occurrence: US)
  Receive Date: 20231020
  Receipt Date: 20231020
  Transmission Date: 20240110
  Serious: Yes (Hospitalization)
  Sender: FDA-Public Use
  Company Number: US-drreddys-LIT/USA/23/0179787

PATIENT
  Age: 40 Year
  Sex: Female

DRUGS (6)
  1. GUAIFENESIN [Suspect]
     Active Substance: GUAIFENESIN
     Indication: Cough
  2. GUAIFENESIN [Suspect]
     Active Substance: GUAIFENESIN
     Indication: Dyspnoea
  3. AZITHROMYCIN [Suspect]
     Active Substance: AZITHROMYCIN
     Indication: Cough
  4. AZITHROMYCIN [Suspect]
     Active Substance: AZITHROMYCIN
     Indication: Dyspnoea
  5. ALBUTEROL [Suspect]
     Active Substance: ALBUTEROL
     Indication: Cough
  6. ALBUTEROL [Suspect]
     Active Substance: ALBUTEROL
     Indication: Dyspnoea

REACTIONS (2)
  - Respiratory distress [Unknown]
  - Drug ineffective for unapproved indication [Unknown]
